FAERS Safety Report 19949673 (Version 1)
Quarter: 2021Q4

REPORT INFORMATION
  Report Type: Spontaneous
  Country: US (occurrence: US)
  Receive Date: 20211012
  Receipt Date: 20211012
  Transmission Date: 20220303
  Serious: Yes (unspecified)
  Sender: FDA-Public Use
  Company Number: None

PATIENT
  Age: 21 Year
  Sex: Male
  Weight: 92.25 kg

DRUGS (1)
  1. MOXIFLOXACIN [Suspect]
     Active Substance: MOXIFLOXACIN
     Indication: Latent tuberculosis
     Route: 048
     Dates: start: 20211011, end: 20211011

REACTIONS (5)
  - Hyperhidrosis [None]
  - Tongue pruritus [None]
  - Anxiety [None]
  - Nausea [None]
  - Throat tightness [None]

NARRATIVE: CASE EVENT DATE: 20211011
